FAERS Safety Report 6251956-6 (Version None)
Quarter: 2009Q2

REPORT INFORMATION
  Report Type: 
  Country: None (occurrence: None)
  Receive Date: 20090629
  Receipt Date: 20070719
  Transmission Date: 20091009
  Serious: Yes (Other)
  Sender: FDA-Public Use
  Company Number: 2009SP013800

PATIENT
  Age: 56 Year
  Sex: Male

DRUGS (1)
  1. PEGATRON (PEGINTERFERON ALFA-2B W/RIBAVIRIN) (PEGYLATED INTERFERON ALF [Suspect]
     Indication: HEPATITIS C

REACTIONS (6)
  - AFFECTIVE DISORDER [None]
  - ANOREXIA [None]
  - FATIGUE [None]
  - HAEMATEMESIS [None]
  - INSOMNIA [None]
  - NAUSEA [None]
